FAERS Safety Report 21839002 (Version 1)
Quarter: 2023Q1

REPORT INFORMATION
  Report Type: Spontaneous
  Country: US (occurrence: None)
  Receive Date: 20230108
  Receipt Date: 20230108
  Transmission Date: 20230418
  Serious: No
  Sender: FDA-Public Use
  Company Number: None

PATIENT
  Age: 70 Year
  Sex: Male
  Weight: 89 kg

DRUGS (1)
  1. MOLNUPIRAVIR [Suspect]
     Active Substance: MOLNUPIRAVIR
     Indication: COVID-19
     Dosage: FREQUENCY : TWICE A DAY;?
     Route: 048
     Dates: start: 20221229, end: 20221229

REACTIONS (5)
  - Pharyngeal swelling [None]
  - Dyspnoea [None]
  - Angioedema [None]
  - Respiratory depression [None]
  - Therapy cessation [None]

NARRATIVE: CASE EVENT DATE: 20221230
